FAERS Safety Report 15541244 (Version 1)
Quarter: 2018Q4

REPORT INFORMATION
  Report Type: Spontaneous
  Country: FR (occurrence: FR)
  Receive Date: 20181023
  Receipt Date: 20181023
  Transmission Date: 20190205
  Serious: Yes (Other)
  Sender: FDA-Public Use
  Company Number: FR-MYLANLABS-2018M1078613

PATIENT
  Age: 20 Year
  Sex: Female

DRUGS (4)
  1. NADOLOL. [Suspect]
     Active Substance: NADOLOL
     Route: 065
  2. FLECAINIDE [Suspect]
     Active Substance: FLECAINIDE
     Indication: VENTRICULAR TACHYCARDIA
     Dosage: 1.67 MG/KG OR 100 MG/DAY
     Route: 065
  3. IVABRADINE [Concomitant]
     Active Substance: IVABRADINE
     Indication: VENTRICULAR TACHYCARDIA
     Dosage: 0.08 MG/KG OR 5 MG/DAY
     Route: 065
  4. NADOLOL. [Suspect]
     Active Substance: NADOLOL
     Indication: VENTRICULAR TACHYCARDIA
     Dosage: FOLLOWED BY 1.3 MG/KG TWICE DAILY
     Route: 065

REACTIONS (3)
  - Dizziness [Unknown]
  - Drug ineffective [Unknown]
  - Fatigue [Unknown]
